FAERS Safety Report 5612399-9 (Version None)
Quarter: 2008Q1

REPORT INFORMATION
  Report Type: 
  Country: None (occurrence: None)
  Receive Date: 20080204
  Receipt Date: 20080122
  Transmission Date: 20080703
  Serious: Yes (Other)
  Sender: FDA-Public Use
  Company Number: JP-ROCHE-539604

PATIENT
  Age: 5 Year
  Sex: Female

DRUGS (9)
  1. TAMIFLU [Suspect]
     Dosage: DOSE INCREASED
     Route: 048
     Dates: start: 20071230, end: 20071230
  2. TAMIFLU [Suspect]
     Dosage: DOSE DECREASED
     Route: 048
     Dates: start: 20071231, end: 20080103
  3. TAMIFLU [Suspect]
     Route: 048
     Dates: start: 20080104, end: 20080104
  4. ASVERIN [Concomitant]
     Route: 048
     Dates: start: 20071230
  5. TERBUTALINE SULFATE [Concomitant]
     Dosage: DRUG NAME: CONVON FORM FINE GRANULE
     Route: 048
     Dates: start: 20071230
  6. MUCODYNE [Concomitant]
     Dosage: DRUG NAME: MUCODYNE DS
     Route: 048
     Dates: start: 20071230
  7. MUCOSOLVAN [Concomitant]
     Dosage: DRUG NAME: MUCOSOLVAN DS
     Route: 048
     Dates: start: 20071230
  8. PERIACTIN [Concomitant]
     Route: 048
     Dates: start: 20071230
  9. HOKUNALIN [Concomitant]
     Dosage: DRUG: HOKUNALIN: TAPE FORM TAPE
     Route: 062
     Dates: start: 20071230

REACTIONS (5)
  - ABNORMAL BEHAVIOUR [None]
  - CONVULSION [None]
  - DELIRIUM [None]
  - HALLUCINATION [None]
  - HALLUCINATION, AUDITORY [None]
